FAERS Safety Report 20666503 (Version 7)
Quarter: 2025Q3

REPORT INFORMATION
  Report Type: Spontaneous
  Country: US (occurrence: US)
  Receive Date: 20220403
  Receipt Date: 20250811
  Transmission Date: 20251020
  Serious: No
  Sender: SANOFI AVENTIS
  Company Number: US-SA-SAC20220331000959

PATIENT
  Age: 44 Year
  Sex: Male
  Weight: 84.82 kg

DRUGS (2)
  1. DUPIXENT [Suspect]
     Active Substance: DUPILUMAB
     Indication: Dermatitis atopic
     Dosage: 300 MG, QOW
     Route: 058
     Dates: start: 201810
  2. DUPIXENT [Suspect]
     Active Substance: DUPILUMAB
     Indication: Seborrhoeic dermatitis
     Dosage: 300MG, QOW
     Route: 058
     Dates: start: 202110

REACTIONS (12)
  - Skin swelling [Unknown]
  - Seborrhoeic dermatitis [Unknown]
  - Condition aggravated [Unknown]
  - Injection site urticaria [Unknown]
  - Hyperhidrosis [Unknown]
  - Urticaria [Unknown]
  - Injection site rash [Unknown]
  - Dermatitis atopic [Unknown]
  - Rash [Unknown]
  - Drug ineffective [Unknown]
  - Product dose omission issue [Unknown]
  - Product use in unapproved indication [Unknown]

NARRATIVE: CASE EVENT DATE: 20181001
